FAERS Safety Report 17463476 (Version 2)
Quarter: 2020Q2

REPORT INFORMATION
  Report Type: Report from Study
  Country: US (occurrence: US)
  Receive Date: 20200226
  Receipt Date: 20200410
  Transmission Date: 20200713
  Serious: Yes (Hospitalization, Other)
  Sender: FDA-Public Use
  Company Number: US-ROCHE-2550452

PATIENT
  Age: 50 Year
  Sex: Female
  Weight: 85.81 kg

DRUGS (4)
  1. TRAMADOL. [Concomitant]
     Active Substance: TRAMADOL
     Dosage: AS REQUIRED
     Route: 065
  2. OCREVUS [Suspect]
     Active Substance: OCRELIZUMAB
     Indication: MULTIPLE SCLEROSIS
     Dosage: 25/JAN/2019, 08/AUG/2019, 05/JUL/2018, 05/JAN/2018, 05/JUN/2017
     Route: 042
     Dates: start: 2018
  3. ALEVE [Concomitant]
     Active Substance: NAPROXEN SODIUM
     Indication: PAIN
  4. OCREVUS [Suspect]
     Active Substance: OCRELIZUMAB
     Route: 042
     Dates: start: 20170627

REACTIONS (5)
  - Cholelithiasis [Recovered/Resolved]
  - Breast cyst [Recovering/Resolving]
  - Bronchospasm [Recovered/Resolved]
  - Plasma cell myeloma [Not Recovered/Not Resolved]
  - Breast mass [Not Recovered/Not Resolved]

NARRATIVE: CASE EVENT DATE: 20170803
